FAERS Safety Report 12652999 (Version 2)
Quarter: 2016Q3

REPORT INFORMATION
  Report Type: Spontaneous
  Country: US (occurrence: US)
  Receive Date: 20160815
  Receipt Date: 20160819
  Transmission Date: 20161109
  Serious: Yes (Life-Threatening, Hospitalization, Other)
  Sender: FDA-Public Use
  Company Number: US-PFIZER INC-001-0073-990073

PATIENT
  Age: 49 Year
  Sex: Female

DRUGS (13)
  1. MEPERIDINE [Concomitant]
     Active Substance: MEPERIDINE
  2. PHENYTOIN SODIUM. [Suspect]
     Active Substance: PHENYTOIN SODIUM
     Indication: CONVULSION PROPHYLAXIS
     Dosage: 1000 MG LOADING DOSE ON DAY OF ADMISSION
     Route: 042
  3. PROPOFOL. [Concomitant]
     Active Substance: PROPOFOL
  4. PHENYTOIN SODIUM. [Suspect]
     Active Substance: PHENYTOIN SODIUM
     Dosage: 300 MG, UNK
     Route: 042
  5. PHENYTOIN SODIUM. [Suspect]
     Active Substance: PHENYTOIN SODIUM
     Dosage: 1500 MG
     Route: 042
  6. MANNITOL. [Concomitant]
     Active Substance: MANNITOL
     Indication: CONVULSION PROPHYLAXIS
     Dosage: 75 G
     Route: 042
  7. PANCURONIUM [Concomitant]
     Active Substance: PANCURONIUM
  8. ALPRAZOLAM. [Concomitant]
     Active Substance: ALPRAZOLAM
     Dosage: UNK
  9. NITROUS OXIDE. [Concomitant]
     Active Substance: NITROUS OXIDE
     Indication: ANAESTHESIA
     Route: 055
  10. IBUPROFEN. [Concomitant]
     Active Substance: IBUPROFEN
     Dosage: UNK
  11. NIMODIPINE. [Concomitant]
     Active Substance: NIMODIPINE
  12. FENTANYL. [Concomitant]
     Active Substance: FENTANYL
  13. ISOFLURANE. [Concomitant]
     Active Substance: ISOFLURANE

REACTIONS (8)
  - Cardiotoxicity [Recovered/Resolved]
  - Lethargy [Recovered/Resolved]
  - Accidental overdose [Recovered/Resolved]
  - Cardiac arrest [Recovered/Resolved]
  - Hypoxia [Recovered/Resolved]
  - Hypercapnia [Recovered/Resolved]
  - Somnolence [Recovered/Resolved]
  - Hypotension [Recovered/Resolved]
